FAERS Safety Report 9687574 (Version 2)
Quarter: 2013Q4

REPORT INFORMATION
  Report Type: Spontaneous
  Country: US (occurrence: US)
  Receive Date: 20131114
  Receipt Date: 20131114
  Transmission Date: 20140711
  Serious: Yes (Hospitalization)
  Sender: FDA-Public Use
  Company Number: US-JNJFOC-20131008968

PATIENT
  Age: 64 Year
  Sex: Male
  Weight: 116.58 kg

DRUGS (11)
  1. XARELTO [Suspect]
     Indication: CEREBROVASCULAR ACCIDENT PROPHYLAXIS
     Route: 048
  2. XARELTO [Suspect]
     Indication: CEREBROVASCULAR ACCIDENT PROPHYLAXIS
     Route: 048
     Dates: start: 20130912, end: 20131006
  3. XARELTO [Suspect]
     Indication: ATRIAL FIBRILLATION
     Route: 048
     Dates: start: 20130912, end: 20131006
  4. XARELTO [Suspect]
     Indication: ATRIAL FIBRILLATION
     Route: 048
  5. LOTENSIN [Concomitant]
     Route: 048
  6. COREG [Concomitant]
     Route: 048
  7. OMNICEF [Concomitant]
     Route: 048
  8. NORCO [Concomitant]
     Dosage: 1-2 TABLETS
     Route: 048
  9. SYNTHROID [Concomitant]
     Dosage: BEFORE BREAKFAST
     Route: 048
  10. METFORMIN [Concomitant]
     Route: 048
  11. PRILOSEC [Concomitant]
     Route: 048

REACTIONS (2)
  - Post procedural haemorrhage [Recovered/Resolved]
  - Haemoglobin decreased [Unknown]
